FAERS Safety Report 9933108 (Version 1)
Quarter: 2014Q1

REPORT INFORMATION
  Report Type: Spontaneous
  Country: US (occurrence: US)
  Receive Date: 20140228
  Receipt Date: 20140228
  Transmission Date: 20141002
  Serious: No
  Sender: FDA-Public Use
  Company Number: US-GLAXOSMITHKLINE-A1049457A

PATIENT
  Sex: Female

DRUGS (6)
  1. LAMICTAL [Suspect]
     Indication: BIPOLAR DISORDER
     Dosage: 200MG TWICE PER DAY
     Route: 048
     Dates: start: 2007
  2. SINGULAIR [Concomitant]
  3. FLONASE [Concomitant]
  4. LORATADINE [Concomitant]
  5. SUDAFED [Concomitant]
  6. MUCINEX [Concomitant]

REACTIONS (2)
  - Drug administration error [Unknown]
  - Drug ineffective [Not Recovered/Not Resolved]
